FAERS Safety Report 10233699 (Version 1)
Quarter: 2014Q2

REPORT INFORMATION
  Report Type: Spontaneous
  Country: US (occurrence: None)
  Receive Date: 20140611
  Receipt Date: 20140611
  Transmission Date: 20141212
  Serious: Yes (Hospitalization)
  Sender: FDA-Public Use
  Company Number: None

PATIENT
  Age: 51 Year
  Sex: Female
  Weight: 106.14 kg

DRUGS (8)
  1. IPILIMUMAB [Suspect]
     Indication: LUNG NEOPLASM MALIGNANT
     Dosage: Q 3 WEEKS, X4
     Dates: start: 20140110, end: 20140331
  2. IPILIMUMAB [Suspect]
     Indication: NON-SMALL CELL LUNG CANCER
     Dosage: Q 3 WEEKS, X4
     Dates: start: 20140110, end: 20140331
  3. IPILIMUMAB [Suspect]
     Dosage: Q 3 WEEKS, X4
     Dates: start: 20140110, end: 20140331
  4. CRIZOTINIB [Concomitant]
  5. EZETIMIBE-SIMVASTATIN [Concomitant]
  6. MULTIVITAMINS [Concomitant]
  7. ONDANSETRON [Concomitant]
  8. PREDNISONE [Concomitant]

REACTIONS (2)
  - Pulmonary embolism [None]
  - Inflammation [None]
